FAERS Safety Report 7125775-2 (Version None)
Quarter: 2010Q4

REPORT INFORMATION
  Report Type: 
  Country: None (occurrence: None)
  Receive Date: 20101129
  Receipt Date: 20101118
  Transmission Date: 20110411
  Serious: Yes (Hospitalization)
  Sender: FDA-Public Use
  Company Number: B0685655A

PATIENT
  Sex: Female

DRUGS (6)
  1. TAGAMET [Suspect]
     Dosage: 800MG PER DAY
     Route: 048
     Dates: start: 20101101, end: 20101103
  2. NEXIUM [Suspect]
     Route: 048
     Dates: start: 20101015, end: 20101020
  3. MESTINON [Concomitant]
     Dosage: 180MG PER DAY
  4. MYTELASE [Concomitant]
     Route: 048
  5. CORTANCYL [Concomitant]
     Dosage: 30MG PER DAY
  6. IMUREL [Concomitant]
     Dosage: 50MG FOUR TIMES PER DAY
     Route: 048

REACTIONS (2)
  - MUSCULAR WEAKNESS [None]
  - MYASTHENIA GRAVIS [None]
